FAERS Safety Report 15639794 (Version 1)
Quarter: 2018Q4

REPORT INFORMATION
  Report Type: Spontaneous
  Country: US (occurrence: US)
  Receive Date: 20181120
  Receipt Date: 20181120
  Transmission Date: 20190205
  Serious: No
  Sender: FDA-Public Use
  Company Number: US-ENDO PHARMACEUTICALS INC-2018-040928

PATIENT

DRUGS (2)
  1. ALPRAZOLAM TABLETS 1 MG [Suspect]
     Active Substance: ALPRAZOLAM
     Indication: PANIC ATTACK
  2. ALPRAZOLAM TABLETS 1 MG [Suspect]
     Active Substance: ALPRAZOLAM
     Indication: ANXIETY
     Dosage: 1 MG, UNKNOWN
     Route: 065

REACTIONS (5)
  - Abdominal pain upper [Unknown]
  - Insomnia [Unknown]
  - Hyperhidrosis [Unknown]
  - Drug ineffective [Unknown]
  - Product substitution issue [Unknown]
